FAERS Safety Report 7466330-4 (Version None)
Quarter: 2011Q2

REPORT INFORMATION
  Report Type: 
  Country: None (occurrence: None)
  Receive Date: 20110509
  Receipt Date: 20100719
  Transmission Date: 20111010
  Serious: No
  Sender: FDA-Public Use
  Company Number: US-ALEXION-A201000843

PATIENT
  Sex: Female

DRUGS (11)
  1. COUMADIN [Concomitant]
     Dosage: 5 MG, QOD ON ALTERNATE DAYS
     Route: 048
  2. ALLERGY MEDICATION [Concomitant]
     Indication: HYPERSENSITIVITY
  3. CORTISONE [Concomitant]
  4. PATANOL [Concomitant]
  5. MULTI-VITAMINS [Concomitant]
     Dosage: UNK
     Route: 048
  6. CALCIUM WITH VITAMIN D             /00944201/ [Concomitant]
     Dosage: UNK
     Route: 048
  7. SOLIRIS [Suspect]
     Indication: PAROXYSMAL NOCTURNAL HAEMOGLOBINURIA
     Dosage: 600 MG, QWX4
     Route: 042
     Dates: start: 20070711, end: 20070801
  8. ELIDEL [Concomitant]
     Dosage: UNK
     Route: 061
  9. SOLIRIS [Suspect]
     Dosage: 900 MG, Q2W
     Route: 042
     Dates: start: 20070808
  10. COUMADIN [Concomitant]
     Dosage: 2.5 MG, QOD ON ALTERNATE DAYS
     Route: 048
  11. FOLIC ACID [Concomitant]
     Dosage: UNK
     Route: 048

REACTIONS (1)
  - CHEST DISCOMFORT [None]
